FAERS Safety Report 8229512-X (Version None)
Quarter: 2012Q1

REPORT INFORMATION
  Report Type: 
  Country: None (occurrence: None)
  Receive Date: 20120322
  Receipt Date: 20120312
  Transmission Date: 20120608
  Serious: Yes (Hospitalization)
  Sender: FDA-Public Use
  Company Number: DE-ABBOTT-12P-062-0914628-00

PATIENT
  Sex: Female
  Weight: 86 kg

DRUGS (2)
  1. HUMIRA [Suspect]
     Dates: start: 20120119
  2. HUMIRA [Suspect]
     Indication: RHEUMATOID ARTHRITIS
     Route: 058
     Dates: start: 20070201, end: 20111001

REACTIONS (9)
  - PYELONEPHRITIS [None]
  - CHILLS [None]
  - CALCULUS URETERIC [None]
  - URINARY TRACT OBSTRUCTION [None]
  - TACHYPNOEA [None]
  - SYSTEMIC INFLAMMATORY RESPONSE SYNDROME [None]
  - NEPHROLITHIASIS [None]
  - RENAL COLIC [None]
  - GENERAL PHYSICAL HEALTH DETERIORATION [None]
